FAERS Safety Report 25798431 (Version 1)
Quarter: 2025Q3

REPORT INFORMATION
  Report Type: Report from Study
  Country: CA (occurrence: CA)
  Receive Date: 20250913
  Receipt Date: 20250913
  Transmission Date: 20251021
  Serious: Yes (Other)
  Sender: CELLTRION
  Company Number: CA-CELLTRION INC.-2025CA032308

PATIENT

DRUGS (12)
  1. RITUXIMAB [Suspect]
     Active Substance: RITUXIMAB
     Indication: Lymphoma
     Route: 065
  2. ACTEMRA [Suspect]
     Active Substance: TOCILIZUMAB
     Indication: Acute febrile neutrophilic dermatosis
     Dosage: 162 MILLIGRAM, 1 EVERY 1 WEEK
     Route: 058
  3. ACTEMRA [Suspect]
     Active Substance: TOCILIZUMAB
     Indication: Acute febrile neutrophilic dermatosis
     Dosage: 162 MILLIGRAM, 1 EVERY 1 WEEK
     Route: 058
  4. ACTEMRA [Suspect]
     Active Substance: TOCILIZUMAB
     Dosage: 162 MILLIGRAM, 1 EVERY 1 WEEK
     Route: 058
  5. ACTEMRA [Suspect]
     Active Substance: TOCILIZUMAB
     Indication: Acute febrile neutrophilic dermatosis
     Dosage: 800 MILLIGRAM, 1 EVERY 4 WEEKS
     Route: 042
  6. METHYLPHENIDATE [Concomitant]
     Active Substance: METHYLPHENIDATE
  7. ALLOPURINOL [Concomitant]
     Active Substance: ALLOPURINOL
  8. LISINOPRIL [Concomitant]
     Active Substance: LISINOPRIL
  9. METHOTREXATE [Concomitant]
     Active Substance: METHOTREXATE
  10. PANTOPRAZOLE SODIUM [Concomitant]
     Active Substance: PANTOPRAZOLE SODIUM
  11. PREDNISONE [Concomitant]
     Active Substance: PREDNISONE
  12. XARELTO [Concomitant]
     Active Substance: RIVAROXABAN

REACTIONS (8)
  - Weight increased [Unknown]
  - Interleukin level increased [Unknown]
  - Arthropathy [Unknown]
  - Hypogammaglobulinaemia [Unknown]
  - Skin disorder [Unknown]
  - Weight decreased [Unknown]
  - Drug ineffective [Unknown]
  - Product prescribing error [Unknown]
